FAERS Safety Report 11789434 (Version 2)
Quarter: 2015Q4

REPORT INFORMATION
  Report Type: Spontaneous
  Country: AU (occurrence: AU)
  Receive Date: 20151201
  Receipt Date: 20151210
  Transmission Date: 20160305
  Serious: No
  Sender: FDA-Public Use
  Company Number: AU-TOLMAR, INC.-2015AU010458

PATIENT
  Age: 75 Year
  Sex: Male

DRUGS (1)
  1. ELIGARD [Suspect]
     Active Substance: LEUPROLIDE ACETATE
     Indication: PROSTATE CANCER
     Dosage: 45 MG, 6 MONTHLY
     Route: 065

REACTIONS (3)
  - Respiratory tract infection [Unknown]
  - Arthritis [Unknown]
  - Laceration [Unknown]

NARRATIVE: CASE EVENT DATE: 201509
